FAERS Safety Report 10265086 (Version 1)
Quarter: 2014Q2

REPORT INFORMATION
  Report Type: Spontaneous
  Country: DK (occurrence: DK)
  Receive Date: 20140627
  Receipt Date: 20140627
  Transmission Date: 20141212
  Serious: Yes (Hospitalization)
  Sender: FDA-Public Use
  Company Number: PHHY2014DK075848

PATIENT
  Age: 82 Year
  Sex: Male

DRUGS (7)
  1. BRILIQUE [Suspect]
     Indication: THROMBOSIS PROPHYLAXIS
     Dosage: 90 MG, BID
     Route: 048
     Dates: start: 20131225, end: 20140206
  2. HJERDYL [Suspect]
     Indication: THROMBOSIS PROPHYLAXIS
     Dosage: STYRKE: 75 MG
     Route: 048
  3. ALENDRONATE [Concomitant]
  4. CARVEDILOL [Concomitant]
  5. RAMIPRIL [Concomitant]
  6. ZARATOR//ATORVASTATIN [Concomitant]
  7. INSULIN [Concomitant]

REACTIONS (1)
  - Iron deficiency anaemia [Unknown]
